FAERS Safety Report 7775138-1 (Version None)
Quarter: 2011Q3

REPORT INFORMATION
  Report Type: 
  Country: None (occurrence: None)
  Receive Date: 20110921
  Receipt Date: 20110908
  Transmission Date: 20111222
  Serious: Yes (Life-Threatening)
  Sender: FDA-Public Use
  Company Number: TCI2011A03752

PATIENT
  Age: 64 Year
  Sex: Male

DRUGS (8)
  1. MEDET (METFORMN HYDROCHLORIDE) [Concomitant]
  2. JANUVIA [Concomitant]
  3. CRESTOR [Concomitant]
  4. BEROM (VOGLIBOSE) [Concomitant]
  5. ACTOS [Suspect]
     Indication: TYPE 2 DIABETES MELLITUS
     Dosage: 15 MG (15 MG, 1 IN 1 D), PER ORAL
     Route: 048
     Dates: start: 20090706, end: 20110825
  6. GLYBURIDE [Concomitant]
  7. ASPIRIN [Concomitant]
  8. AMARYL [Concomitant]

REACTIONS (4)
  - TREATMENT NONCOMPLIANCE [None]
  - PROSTATE CANCER [None]
  - DIABETES MELLITUS INADEQUATE CONTROL [None]
  - DEMENTIA [None]
